FAERS Safety Report 7447802-5 (Version None)
Quarter: 2011Q2

REPORT INFORMATION
  Report Type: 
  Country: None (occurrence: None)
  Receive Date: 20110429
  Receipt Date: 20110421
  Transmission Date: 20111010
  Serious: Yes (Death, Hospitalization, Other)
  Sender: FDA-Public Use
  Company Number: PHHY2011US33452

PATIENT
  Sex: Female
  Weight: 60.5 kg

DRUGS (10)
  1. LASIX [Concomitant]
     Dosage: 20 MG, A DAY
     Route: 048
  2. ROCEPHIN [Concomitant]
     Indication: SWELLING FACE
     Dosage: UNK
     Route: 042
     Dates: start: 20101213
  3. PROBIOTICS [Concomitant]
  4. EXJADE [Suspect]
     Dosage: 2 TAB DAILY
     Route: 048
  5. CEFTIN [Concomitant]
  6. ARANESP [Concomitant]
  7. INVANZ [Concomitant]
  8. EXJADE [Suspect]
     Indication: NEOPLASM
     Dosage: 750 MG, QD
     Route: 048
     Dates: start: 20100630, end: 20101001
  9. MAXIPIME [Concomitant]
     Dosage: 2 G, ONCE
     Route: 042
  10. NEXIUM [Concomitant]
     Dosage: 40 MG DAILY
     Route: 048

REACTIONS (29)
  - PETECHIAE [None]
  - DEATH [None]
  - HAEMATURIA [None]
  - FATIGUE [None]
  - OEDEMA PERIPHERAL [None]
  - FACIAL PAIN [None]
  - URINARY TRACT INFECTION [None]
  - STAPHYLOCOCCAL INFECTION [None]
  - ABDOMINAL PAIN [None]
  - BRONCHITIS [None]
  - CHRONIC SINUSITIS [None]
  - CELLULITIS [None]
  - PANCYTOPENIA [None]
  - AORTIC CALCIFICATION [None]
  - DIARRHOEA [None]
  - TOOTH LOSS [None]
  - CONTUSION [None]
  - CARDIOMEGALY [None]
  - THROMBOCYTOPENIA [None]
  - ATELECTASIS [None]
  - RECTAL DISCHARGE [None]
  - CONFUSIONAL STATE [None]
  - EPISTAXIS [None]
  - ARTERIOSCLEROSIS CORONARY ARTERY [None]
  - SWELLING FACE [None]
  - LYMPHADENOPATHY [None]
  - HAEMOPTYSIS [None]
  - PYREXIA [None]
  - CHILLS [None]
